FAERS Safety Report 6392304-0 (Version None)
Quarter: 2009Q4

REPORT INFORMATION
  Report Type: 
  Country: None (occurrence: None)
  Receive Date: 20091007
  Receipt Date: 20090923
  Transmission Date: 20100525
  Serious: Yes (Hospitalization)
  Sender: FDA-Public Use
  Company Number: PHHY2009CA33760

PATIENT
  Sex: Male
  Weight: 80.9 kg

DRUGS (7)
  1. EXJADE [Suspect]
     Indication: MYELOFIBROSIS
     Dosage: 2000 MG, QD
     Route: 048
     Dates: start: 20080601
  2. EXJADE [Suspect]
     Indication: IRON OVERLOAD
     Dosage: UNK
     Route: 048
  3. CIPROFLOXACIN HYDROCHLORIDE [Concomitant]
     Dosage: 500 MG, BID
  4. PREDNISONE [Concomitant]
     Dosage: 100 MG, QD
  5. ANTIBIOTICS [Concomitant]
     Route: 042
  6. STEROIDS NOS [Concomitant]
  7. ANTIFUNGALS [Concomitant]

REACTIONS (4)
  - BLOOD CREATININE INCREASED [None]
  - PYODERMA GANGRENOSUM [None]
  - SKIN ULCER [None]
  - SURGERY [None]
